FAERS Safety Report 7796250-7 (Version None)
Quarter: 2011Q4

REPORT INFORMATION
  Report Type: 
  Country: None (occurrence: None)
  Receive Date: 20111004
  Receipt Date: 20111003
  Transmission Date: 20120403
  Serious: Yes (Hospitalization, Other)
  Sender: FDA-Public Use
  Company Number: US-MERCK-0706USA00796

PATIENT
  Age: 61 Year
  Sex: Female
  Weight: 73 kg

DRUGS (3)
  1. FOSAMAX [Suspect]
     Route: 048
     Dates: start: 20050225
  2. FOSAMAX [Suspect]
     Indication: OSTEOPOROSIS
     Route: 048
     Dates: start: 20030313, end: 20030801
  3. FOSAMAX [Suspect]
     Route: 048
     Dates: end: 20040719

REACTIONS (31)
  - CELLULITIS [None]
  - CEREBROVASCULAR DISORDER [None]
  - SKIN ULCER [None]
  - HEADACHE [None]
  - THROMBOSIS [None]
  - BLOOD PRESSURE INCREASED [None]
  - ANXIETY [None]
  - HYPERTENSION [None]
  - ADVERSE EVENT [None]
  - DEPRESSION [None]
  - TOOTH EXTRACTION [None]
  - NASAL DISCOMFORT [None]
  - URTICARIA [None]
  - CEREBROVASCULAR ACCIDENT [None]
  - PALPITATIONS [None]
  - HEART RATE INCREASED [None]
  - GINGIVAL INFECTION [None]
  - MENISCUS LESION [None]
  - HYPERLIPIDAEMIA [None]
  - BLOOD CHOLESTEROL INCREASED [None]
  - CHEST PAIN [None]
  - GASTRITIS [None]
  - DYSURIA [None]
  - VENOUS INSUFFICIENCY [None]
  - BRONCHITIS [None]
  - NOCTURIA [None]
  - OSTEONECROSIS OF JAW [None]
  - OSTEOARTHRITIS [None]
  - HEART RATE IRREGULAR [None]
  - GASTROOESOPHAGEAL REFLUX DISEASE [None]
  - PHARYNGITIS [None]
